FAERS Safety Report 19894614 (Version 1)
Quarter: 2021Q3

REPORT INFORMATION
  Report Type: Spontaneous
  Country: US (occurrence: US)
  Receive Date: 20210929
  Receipt Date: 20210929
  Transmission Date: 20211014
  Serious: No
  Sender: FDA-Public Use
  Company Number: None

PATIENT
  Age: 73 Year
  Sex: Male

DRUGS (1)
  1. TOCILIZUMAB (TOCILIZUMAB 20MG/ML INJ,SOLN,20ML) [Suspect]
     Active Substance: TOCILIZUMAB
     Indication: COVID-19
     Dosage: ?          OTHER ROUTE:IV?
     Route: 042
     Dates: start: 20210802, end: 20210803

REACTIONS (2)
  - Gastric haemorrhage [None]
  - Large intestine perforation [None]

NARRATIVE: CASE EVENT DATE: 20210826
